FAERS Safety Report 6149610-4 (Version None)
Quarter: 2009Q2

REPORT INFORMATION
  Report Type: 
  Country: None (occurrence: None)
  Receive Date: 20090406
  Receipt Date: 20090406
  Transmission Date: 20091009
  Serious: Yes (Hospitalization)
  Sender: FDA-Public Use
  Company Number: None

PATIENT
  Age: 51 Year
  Sex: Male
  Weight: 79.8 kg

DRUGS (1)
  1. SYMLIN [Suspect]
     Indication: DIABETES MELLITUS
     Dosage: 60 MG TID IM
     Route: 030

REACTIONS (3)
  - DRUG ADMINISTERED AT INAPPROPRIATE SITE [None]
  - INFECTION [None]
  - MUSCLE ABSCESS [None]
